FAERS Safety Report 21773508 (Version 1)
Quarter: 2022Q4

REPORT INFORMATION
  Report Type: Report from Study
  Country: US (occurrence: US)
  Receive Date: 20221223
  Receipt Date: 20221223
  Transmission Date: 20230113
  Serious: No
  Sender: FDA-Public Use
  Company Number: US-ABBVIE-4208429

PATIENT
  Sex: Male

DRUGS (1)
  1. HUMIRA [Suspect]
     Active Substance: ADALIMUMAB
     Indication: Ankylosing spondylitis
     Dosage: CF
     Route: 058

REACTIONS (6)
  - Paralysis [Recovering/Resolving]
  - Walking disability [Unknown]
  - Wheelchair user [Unknown]
  - Neck injury [Unknown]
  - Contusion [Unknown]
  - Pain [Recovering/Resolving]
